FAERS Safety Report 5451404-X (Version None)
Quarter: 2007Q3

REPORT INFORMATION
  Report Type: 
  Country: None (occurrence: None)
  Receive Date: 20070913
  Receipt Date: 20070910
  Transmission Date: 20080115
  Serious: Yes (Hospitalization)
  Sender: FDA-Public Use
  Company Number: A0680168A

PATIENT
  Age: 5 Month
  Sex: Female

DRUGS (2)
  1. ALTABAX [Suspect]
     Indication: BLISTER
     Route: 061
     Dates: start: 20070905, end: 20070907
  2. CEPHALEXIN [Concomitant]
     Indication: DRUG USE FOR UNKNOWN INDICATION

REACTIONS (3)
  - BLISTER [None]
  - CONDITION AGGRAVATED [None]
  - RASH VESICULAR [None]
